FAERS Safety Report 14627861 (Version 2)
Quarter: 2018Q1

REPORT INFORMATION
  Report Type: Spontaneous
  Country: IT (occurrence: IT)
  Receive Date: 20180307
  Receipt Date: 20180307
  Transmission Date: 20180509
  Serious: Yes (Hospitalization)
  Sender: FDA-Public Use
  Company Number: IT-CONCORDIA PHARMACEUTICALS INC.-E2B_00010363

PATIENT
  Age: 83 Year
  Sex: Male
  Weight: 73 kg

DRUGS (1)
  1. LANOXIN [Suspect]
     Active Substance: DIGOXIN
     Dosage: ; IN TOTAL
     Route: 048
     Dates: start: 20171108, end: 20171108

REACTIONS (2)
  - Medication error [Recovered/Resolved]
  - Sopor [Recovered/Resolved]

NARRATIVE: CASE EVENT DATE: 20171108
